FAERS Safety Report 14145006 (Version 1)
Quarter: 2017Q4

REPORT INFORMATION
  Report Type: Spontaneous
  Country: US (occurrence: US)
  Receive Date: 20171031
  Receipt Date: 20171031
  Transmission Date: 20180321
  Serious: No
  Sender: FDA-Public Use
  Company Number: US-TEVA-819334ACC

PATIENT
  Age: 34 Year
  Sex: Female
  Weight: 81.72 kg

DRUGS (1)
  1. PARAGARD T 380A [Suspect]
     Active Substance: COPPER
     Indication: CONTRACEPTION
     Dates: start: 201703, end: 201709

REACTIONS (7)
  - Abdominal distension [Recovered/Resolved]
  - Muscle spasms [Recovered/Resolved]
  - Weight increased [Recovered/Resolved]
  - Cough [Not Recovered/Not Resolved]
  - Vaginal haemorrhage [Recovered/Resolved]
  - Menorrhagia [Recovered/Resolved]
  - Pollakiuria [Not Recovered/Not Resolved]

NARRATIVE: CASE EVENT DATE: 201709
